FAERS Safety Report 9487067 (Version 1)
Quarter: 2013Q3

REPORT INFORMATION
  Report Type: Spontaneous
  Country: BE (occurrence: BE)
  Receive Date: 20130829
  Receipt Date: 20130829
  Transmission Date: 20140515
  Serious: Yes (Hospitalization)
  Sender: FDA-Public Use
  Company Number: BE-B.I. PHARMACEUTICALS,INC./RIDGEFIELD-2013-BL-00383BL

PATIENT
  Sex: Male

DRUGS (1)
  1. CATAPRESSAN [Suspect]
     Indication: HYPERTENSION

REACTIONS (1)
  - Atonic urinary bladder [Not Recovered/Not Resolved]
